FAERS Safety Report 15018828 (Version 1)
Quarter: 2018Q2

REPORT INFORMATION
  Report Type: Report from Study
  Country: US (occurrence: US)
  Receive Date: 20180616
  Receipt Date: 20180616
  Transmission Date: 20180711
  Serious: No
  Sender: FDA-Public Use
  Company Number: PHEH2018US024094

PATIENT
  Sex: Male

DRUGS (1)
  1. GILENYA [Suspect]
     Active Substance: FINGOLIMOD HYDROCHLORIDE
     Indication: MULTIPLE SCLEROSIS
     Dosage: 1 DF, QD
     Route: 048
     Dates: start: 201610

REACTIONS (6)
  - Cough [Unknown]
  - Nasopharyngitis [Unknown]
  - Asthenia [Unknown]
  - Oropharyngeal pain [Unknown]
  - Depressed mood [Unknown]
  - Decreased interest [Unknown]
